FAERS Safety Report 6525638-7 (Version None)
Quarter: 2009Q4

REPORT INFORMATION
  Report Type: 
  Country: None (occurrence: None)
  Receive Date: 20091224
  Receipt Date: 20091216
  Transmission Date: 20100525
  Serious: Yes (Life-Threatening, Hospitalization)
  Sender: FDA-Public Use
  Company Number: IDA-00307

PATIENT

DRUGS (5)
  1. PROPRANOLOL [Suspect]
     Dosage: 2 G
  2. ACETAMINOPHEN [Suspect]
     Dosage: FORMULATION:
  3. MEPROBAMATE [Suspect]
     Dosage: FORMULATION:UNK
  4. PAROXETINE HCL [Suspect]
     Dosage: FORMULATION: UNK
  5. (DEXTROPROPOXYPHENE) [Suspect]
     Dosage: FORMULATION: UNK

REACTIONS (7)
  - CARDIOGENIC SHOCK [None]
  - COMA SCALE ABNORMAL [None]
  - DIALYSIS [None]
  - DRUG TOXICITY [None]
  - HYPOKINESIA [None]
  - MULTIPLE DRUG OVERDOSE [None]
  - RENAL FAILURE ACUTE [None]
